FAERS Safety Report 16224457 (Version 1)
Quarter: 2019Q2

REPORT INFORMATION
  Report Type: Spontaneous
  Country: NL (occurrence: NL)
  Receive Date: 20190422
  Receipt Date: 20190422
  Transmission Date: 20190711
  Serious: No
  Sender: FDA-Public Use
  Company Number: NL-JNJFOC-20190432704

PATIENT
  Sex: Male
  Weight: 57 kg

DRUGS (2)
  1. METHYLPHENIDATE HYDROCHLORIDE. [Suspect]
     Active Substance: METHYLPHENIDATE HYDROCHLORIDE
     Indication: DISTURBANCE IN ATTENTION
     Route: 048
     Dates: start: 2017
  2. RISPERIDON [Concomitant]
     Active Substance: RISPERIDONE
     Route: 065

REACTIONS (1)
  - Priapism [Not Recovered/Not Resolved]
